FAERS Safety Report 9636492 (Version 3)
Quarter: 2014Q1

REPORT INFORMATION
  Report Type: Spontaneous
  Country: US (occurrence: US)
  Receive Date: 20131021
  Receipt Date: 20140103
  Transmission Date: 20141002
  Serious: Yes (Hospitalization, Other)
  Sender: FDA-Public Use
  Company Number: US-GILEAD-2013-0085840

PATIENT
  Sex: Female
  Weight: 87.53 kg

DRUGS (4)
  1. LETAIRIS [Suspect]
     Indication: PULMONARY ARTERIAL HYPERTENSION
     Dosage: 10 MG, QD
     Route: 065
     Dates: start: 20130718
  2. LETAIRIS [Suspect]
     Indication: CARDIAC DISORDER
  3. REMODULIN [Concomitant]
     Route: 058
  4. TREPROSTINIL [Concomitant]

REACTIONS (1)
  - Pulmonary arterial hypertension [Unknown]
